FAERS Safety Report 21477985 (Version 1)
Quarter: 2022Q4

REPORT INFORMATION
  Report Type: Spontaneous
  Country: US (occurrence: None)
  Receive Date: 20221019
  Receipt Date: 20221019
  Transmission Date: 20230112
  Serious: Yes (Other)
  Sender: FDA-Public Use
  Company Number: US-ROCHE-3199431

PATIENT
  Sex: Female

DRUGS (1)
  1. TAMIFLU [Suspect]
     Active Substance: OSELTAMIVIR PHOSPHATE
     Indication: Product used for unknown indication
     Route: 065

REACTIONS (9)
  - Sensory disturbance [Unknown]
  - Swelling face [Unknown]
  - Loss of consciousness [Unknown]
  - Coma [Unknown]
  - Blindness [Unknown]
  - Paralysis [Unknown]
  - Communication disorder [Unknown]
  - Neuropathy peripheral [Unknown]
  - Movement disorder [Unknown]
